FAERS Safety Report 10667736 (Version 1)
Quarter: 2014Q4

REPORT INFORMATION
  Report Type: Other
  Country: IE (occurrence: IE)
  Receive Date: 20141222
  Receipt Date: 20141222
  Transmission Date: 20150529
  Serious: Yes (Other)
  Sender: FDA-Public Use
  Company Number: IE-ACTELION-A-CH2014-109817

PATIENT
  Age: 11 Year
  Sex: Female

DRUGS (3)
  1. TRACLEER [Suspect]
     Active Substance: BOSENTAN\BOSENTAN MONOHYDRATE
     Indication: PULMONARY ARTERIAL HYPERTENSION
     Dosage: 1 MG/KG, BID
     Route: 048
  2. OXYGEN. [Concomitant]
     Active Substance: OXYGEN
  3. SILDENAFIL. [Concomitant]
     Active Substance: SILDENAFIL
     Dosage: 1 MG/KG, TID

REACTIONS (13)
  - Ventricular failure [Unknown]
  - Heart transplant [Unknown]
  - Congenital coronary artery malformation [Unknown]
  - Condition aggravated [Unknown]
  - Protein-losing gastroenteropathy [Unknown]
  - Diaphragmatic paralysis [Unknown]
  - Nodal rhythm [Unknown]
  - Dyspnoea [Unknown]
  - Cavopulmonary anastomosis [Unknown]
  - Exercise tolerance decreased [Unknown]
  - Intracardiac thrombus [Unknown]
  - Fatigue [Unknown]
  - Cardiac pacemaker insertion [Unknown]
